FAERS Safety Report 6811316-3 (Version None)
Quarter: 2010Q2

REPORT INFORMATION
  Report Type: 
  Country: None (occurrence: None)
  Receive Date: 20100630
  Receipt Date: 20091125
  Transmission Date: 20101027
  Serious: No
  Sender: FDA-Public Use
  Company Number: US-AMGEN-KDL376819

PATIENT
  Age: 78 Year
  Sex: Female
  Weight: 62.7 kg

DRUGS (4)
  1. PROCRIT [Suspect]
     Indication: ANAEMIA
     Dates: start: 20080101, end: 20080101
  2. UNSPECIFIED ANTIHYPERTENSIVE AGENT [Concomitant]
  3. EVISTA [Concomitant]
  4. UNSPECIFIED INHALER [Concomitant]

REACTIONS (2)
  - ALOPECIA [None]
  - HAEMOGLOBIN DECREASED [None]
